FAERS Safety Report 12711149 (Version 1)
Quarter: 2016Q3

REPORT INFORMATION
  Report Type: Spontaneous
  Country: None (occurrence: US)
  Receive Date: 20160902
  Receipt Date: 20160902
  Transmission Date: 20161109
  Serious: No
  Sender: FDA-Public Use
  Company Number: None

PATIENT
  Age: 58 Year
  Sex: Female
  Weight: 138.8 kg

DRUGS (1)
  1. CELECOXIB, 200MG [Suspect]
     Active Substance: CELECOXIB
     Route: 048
     Dates: start: 20160801, end: 20160815

REACTIONS (1)
  - Drug ineffective [None]

NARRATIVE: CASE EVENT DATE: 20160815
